FAERS Safety Report 5868109-3 (Version None)
Quarter: 2008Q3

REPORT INFORMATION
  Report Type: 
  Country: None (occurrence: None)
  Receive Date: 20080902
  Receipt Date: 20080501
  Transmission Date: 20090109
  Serious: Yes (Hospitalization)
  Sender: FDA-Public Use
  Company Number: US-ABBOTT-08P-163-0449968-00

PATIENT
  Sex: Male
  Weight: 112 kg

DRUGS (2)
  1. DEPAKOTE ER [Suspect]
     Indication: CONVULSION
     Route: 048
     Dates: start: 19890101, end: 20080401
  2. DEPAKOTE ER [Suspect]
     Route: 048
     Dates: start: 20080401

REACTIONS (5)
  - AGGRESSION [None]
  - AGITATION [None]
  - CONFUSIONAL STATE [None]
  - INFECTION [None]
  - WEIGHT DECREASED [None]
